FAERS Safety Report 15269668 (Version 1)
Quarter: 2018Q3

REPORT INFORMATION
  Report Type: Spontaneous
  Country: US (occurrence: US)
  Receive Date: 20180813
  Receipt Date: 20180813
  Transmission Date: 20181010
  Serious: No
  Sender: FDA-Public Use
  Company Number: US-TEVA-2018-US-943396

PATIENT
  Age: 27 Year
  Sex: Female

DRUGS (3)
  1. LEVOTHYROXINE. [Concomitant]
     Active Substance: LEVOTHYROXINE
  2. COPAXONE [Suspect]
     Active Substance: GLATIRAMER ACETATE
     Indication: MULTIPLE SCLEROSIS
     Route: 058
     Dates: start: 20160709
  3. VITAMIN D3 [Concomitant]
     Active Substance: CHOLECALCIFEROL

REACTIONS (1)
  - Skin irritation [Not Recovered/Not Resolved]

NARRATIVE: CASE EVENT DATE: 20180806
